FAERS Safety Report 25884354 (Version 1)
Quarter: 2025Q4

REPORT INFORMATION
  Report Type: Spontaneous
  Country: US (occurrence: None)
  Receive Date: 20251004
  Receipt Date: 20251004
  Transmission Date: 20260118
  Serious: Yes (Death)
  Sender: FDA-CTU
  Company Number: None

PATIENT
  Age: 83 Year
  Sex: Male
  Weight: 81 kg

DRUGS (1)
  1. AMPHOTERICIN B [Suspect]
     Active Substance: AMPHOTERICIN B

REACTIONS (13)
  - Victim of abuse [None]
  - Product selection error [None]
  - Overdose [None]
  - Product reconstitution quality issue [None]
  - Dose calculation error [None]
  - Product preparation issue [None]
  - Product sterility issue [None]
  - Drug monitoring procedure not performed [None]
  - Wrong technique in product usage process [None]
  - Infusion related reaction [None]
  - General physical health deterioration [None]
  - Loss of consciousness [None]
  - Victim of crime [None]

NARRATIVE: CASE EVENT DATE: 20250907
